FAERS Safety Report 5946041-4 (Version None)
Quarter: 2008Q4

REPORT INFORMATION
  Report Type: 
  Country: None (occurrence: None)
  Receive Date: 20081106
  Receipt Date: 20081106
  Transmission Date: 20090506
  Serious: Yes (Hospitalization)
  Sender: FDA-Public Use
  Company Number: None

PATIENT
  Sex: Female
  Weight: 63.9572 kg

DRUGS (2)
  1. ABRAXANE [Suspect]
     Indication: OVARIAN CANCER RECURRENT
     Dosage: 260 MG/M2 ONCE EVERY 21 DAYS INTRAVENOUS (NOT OTHERWISE SPECIFIED)
     Route: 042
     Dates: start: 20080630, end: 20080922
  2. VANDETANIB [Suspect]
     Indication: OVARIAN CANCER RECURRENT
     Dosage: 100 MG DAILY ORAL
     Route: 048
     Dates: start: 20080630, end: 20081010

REACTIONS (4)
  - ANAEMIA [None]
  - MALIGNANT NEOPLASM PROGRESSION [None]
  - VAGINAL HAEMORRHAGE [None]
  - VAGINAL NEOPLASM [None]
